FAERS Safety Report 4754946-5 (Version None)
Quarter: 2005Q3

REPORT INFORMATION
  Report Type: 
  Country: None (occurrence: None)
  Receive Date: 20050829
  Receipt Date: 20050314
  Transmission Date: 20060218
  Serious: Yes (Hospitalization, Other)
  Sender: FDA-Public Use
  Company Number: US-MERCK-0503USA02897

PATIENT
  Age: 65 Year
  Sex: Female

DRUGS (9)
  1. VIOXX [Suspect]
     Indication: ARTHRITIS
     Route: 048
     Dates: start: 20000301, end: 20040101
  2. ASPIRIN [Concomitant]
     Indication: PAIN
     Route: 048
     Dates: start: 20020101
  3. ASPIRIN [Concomitant]
     Indication: ANTICOAGULANT THERAPY
     Route: 048
     Dates: start: 20020101
  4. VASOTEC RPD [Concomitant]
     Route: 065
     Dates: start: 19950101
  5. SYNTHROID [Concomitant]
     Route: 065
  6. METFORMIN [Concomitant]
     Route: 065
  7. PLAVIX [Concomitant]
     Route: 065
     Dates: start: 20040701
  8. TYLENOL W/ CODEINE NO. 3 [Concomitant]
     Route: 065
     Dates: start: 19800101
  9. HYDROCHLOROTHIAZIDE [Concomitant]
     Route: 065
     Dates: start: 19950101

REACTIONS (9)
  - ANGINA PECTORIS [None]
  - BLOOD CHOLESTEROL INCREASED [None]
  - CARDIAC DISORDER [None]
  - CHRONIC FATIGUE SYNDROME [None]
  - DEEP VEIN THROMBOSIS [None]
  - DIABETES MELLITUS [None]
  - DYSPNOEA [None]
  - OEDEMA PERIPHERAL [None]
  - PANIC DISORDER [None]
